FAERS Safety Report 9425631 (Version 1)
Quarter: 2013Q3

REPORT INFORMATION
  Report Type: Report from Study
  Country: NG (occurrence: NG)
  Receive Date: 20130729
  Receipt Date: 20130729
  Transmission Date: 20140515
  Serious: Yes (Death, Congenital Anomaly)
  Sender: FDA-Public Use
  Company Number: NG-GILEAD-2013-0079743

PATIENT
  Sex: Male

DRUGS (5)
  1. EMTRICITABINE/TENOFOVIR DISOPROXIL FUMARATE [Suspect]
     Indication: HIV INFECTION
     Dosage: UNK
     Route: 064
     Dates: start: 201106
  2. NEVIRAPINE [Suspect]
     Indication: HIV INFECTION
     Dosage: UNK
     Route: 064
     Dates: start: 201106
  3. FOLATE [Concomitant]
     Route: 064
  4. IRON [Concomitant]
     Route: 064
  5. PYRIMETHAMINE W/SULFADOXINE [Concomitant]
     Indication: MALARIA PROPHYLAXIS
     Route: 064

REACTIONS (2)
  - Spina bifida [Not Recovered/Not Resolved]
  - Death [Fatal]
